FAERS Safety Report 13126018 (Version 1)
Quarter: 2017Q1

REPORT INFORMATION
  Report Type: Spontaneous
  Country: US (occurrence: US)
  Receive Date: 20170118
  Receipt Date: 20170118
  Transmission Date: 20170428
  Serious: Yes (Hospitalization)
  Sender: FDA-Public Use
  Company Number: US-BIOGEN-2017BI00343686

PATIENT
  Age: 50 Year
  Sex: Female

DRUGS (1)
  1. TYSABRI [Suspect]
     Active Substance: NATALIZUMAB
     Indication: MULTIPLE SCLEROSIS
     Dosage: INFUSED OVER 1 HOUR
     Route: 042
     Dates: start: 2013

REACTIONS (4)
  - Hip fracture [Recovered/Resolved]
  - Fall [Recovered/Resolved]
  - Femur fracture [Recovered/Resolved]
  - Osteoporosis [Not Recovered/Not Resolved]

NARRATIVE: CASE EVENT DATE: 2013
